FAERS Safety Report 4782759-7 (Version None)
Quarter: 2005Q3

REPORT INFORMATION
  Report Type: 
  Country: None (occurrence: None)
  Receive Date: 20050929
  Receipt Date: 20041215
  Transmission Date: 20060218
  Serious: Yes (Disabling)
  Sender: FDA-Public Use
  Company Number: DE-BRISTOL-MYERS SQUIBB COMPANY-12799821

PATIENT
  Age: 75 Year
  Sex: Male

DRUGS (1)
  1. COAPROVEL TABS 300MG/12.5MG [Suspect]
     Indication: HYPERTENSION
     Route: 048
     Dates: start: 20020101, end: 20040101

REACTIONS (5)
  - BALANCE DISORDER [None]
  - DYSAESTHESIA [None]
  - GAIT DISTURBANCE [None]
  - HYPOAESTHESIA [None]
  - PARAESTHESIA [None]
